FAERS Safety Report 11691628 (Version 1)
Quarter: 2015Q4

REPORT INFORMATION
  Report Type: Report from Study
  Country: US (occurrence: US)
  Receive Date: 20151102
  Receipt Date: 20151102
  Transmission Date: 20160304
  Serious: Yes (Other)
  Sender: FDA-Public Use
  Company Number: US-BRISTOL-MYERS SQUIBB COMPANY-15359714

PATIENT
  Sex: Female

DRUGS (1)
  1. ATAZANAVIR SULFATE [Suspect]
     Active Substance: ATAZANAVIR SULFATE
     Indication: HIV INFECTION
     Dosage: UNK
     Route: 065
     Dates: start: 20040220, end: 20040520

REACTIONS (3)
  - Live birth [Unknown]
  - Premature delivery [Unknown]
  - Pregnancy [Recovered/Resolved]
